FAERS Safety Report 6996984-8 (Version None)
Quarter: 2010Q3

REPORT INFORMATION
  Report Type: 
  Country: None (occurrence: None)
  Receive Date: 20100918
  Receipt Date: 20091012
  Transmission Date: 20110219
  Serious: No
  Sender: FDA-Public Use
  Company Number: US-WYE-H10737209

PATIENT
  Age: 21 Year
  Sex: Female
  Weight: 48.58 kg

DRUGS (1)
  1. ADVIL PM [Suspect]
     Indication: INSOMNIA
     Dosage: 4 CAPS AT 10 AM AND ANOTHER 4 CAPS AT 1PM
     Route: 048
     Dates: start: 20090825, end: 20090825

REACTIONS (3)
  - DRUG INEFFECTIVE [None]
  - FEELING ABNORMAL [None]
  - OVERDOSE [None]
